FAERS Safety Report 5736158-1 (Version None)
Quarter: 2008Q2

REPORT INFORMATION
  Report Type: 
  Country: None (occurrence: None)
  Receive Date: 20080509
  Receipt Date: 20080509
  Transmission Date: 20081010
  Serious: Yes (Hospitalization)
  Sender: FDA-Public Use
  Company Number: None

PATIENT
  Age: 72 Year
  Sex: Male
  Weight: 100.7 kg

DRUGS (1)
  1. GLYBURIDE [Suspect]
     Indication: DIABETES MELLITUS
     Dosage: 2.5 MG BID PO
     Route: 048
     Dates: start: 20041104, end: 20080423

REACTIONS (2)
  - HYPOGLYCAEMIA [None]
  - TREATMENT NONCOMPLIANCE [None]
